FAERS Safety Report 9319380 (Version 3)
Quarter: 2013Q3

REPORT INFORMATION
  Report Type: Spontaneous
  Country: DK (occurrence: DK)
  Receive Date: 20130530
  Receipt Date: 20130918
  Transmission Date: 20140515
  Serious: Yes (Hospitalization)
  Sender: FDA-Public Use
  Company Number: DK-COVIDIEN/TYCO HEALTHCARE/MALLINCKRODT-T201301785

PATIENT
  Age: 74 Year
  Sex: Male

DRUGS (1)
  1. OPTIRAY [Suspect]
     Indication: SCAN WITH CONTRAST
     Dates: start: 20121207, end: 20121207

REACTIONS (6)
  - Hypersensitivity [Recovered/Resolved]
  - Hypertension [Not Recovered/Not Resolved]
  - Vomiting [Recovered/Resolved]
  - Nausea [Recovered/Resolved]
  - Dyspnoea [Recovered/Resolved]
  - Speech disorder [Recovered/Resolved]
